FAERS Safety Report 25774565 (Version 3)
Quarter: 2025Q4

REPORT INFORMATION
  Report Type: Spontaneous
  Country: US (occurrence: US)
  Receive Date: 20250908
  Receipt Date: 20251001
  Transmission Date: 20260117
  Serious: No
  Sender: SANDOZ
  Company Number: US-SANDOZ-SDZ2025US065144

PATIENT

DRUGS (2)
  1. HYRIMOZ [Suspect]
     Active Substance: ADALIMUMAB-ADAZ
     Indication: Product used for unknown indication
     Dosage: 40 MG/0.4 ML
     Route: 058
  2. HYRIMOZ [Suspect]
     Active Substance: ADALIMUMAB-ADAZ
     Indication: Product used for unknown indication
     Dosage: 40 MG/0.4 ML
     Route: 058

REACTIONS (3)
  - Incorrect dose administered [Unknown]
  - Device leakage [Unknown]
  - Device malfunction [Unknown]
